FAERS Safety Report 7677724-6 (Version None)
Quarter: 2011Q3

REPORT INFORMATION
  Report Type: 
  Country: None (occurrence: None)
  Receive Date: 20110811
  Receipt Date: 20110808
  Transmission Date: 20111222
  Serious: Yes (Death)
  Sender: FDA-Public Use
  Company Number: PHHY2011US39112

PATIENT
  Sex: Male

DRUGS (1)
  1. EXJADE [Suspect]
     Indication: NEOPLASM
     Dosage: 1500 MG, QD
     Route: 048

REACTIONS (4)
  - NUCLEATED RED CELLS [None]
  - NEOPLASM MALIGNANT [None]
  - NEOPLASM PROGRESSION [None]
  - WHITE BLOOD CELL COUNT ABNORMAL [None]
